FAERS Safety Report 11185508 (Version 1)
Quarter: 2015Q2

REPORT INFORMATION
  Report Type: Spontaneous
  Country: US (occurrence: US)
  Receive Date: 20150612
  Receipt Date: 20150612
  Transmission Date: 20150821
  Serious: No
  Sender: FDA-Public Use
  Company Number: US-DSJP-DSU-2014-124128

PATIENT
  Age: 62 Year
  Sex: Male
  Weight: 111.11 kg

DRUGS (9)
  1. BENICAR [Suspect]
     Active Substance: OLMESARTAN MEDOXOMIL
     Dosage: 20 MG, QD
     Route: 048
     Dates: start: 201402, end: 201403
  2. BENICAR [Suspect]
     Active Substance: OLMESARTAN MEDOXOMIL
     Dosage: 1/2 (20 MG) TABLET, QD
     Route: 048
     Dates: start: 2013
  3. BENICAR [Suspect]
     Active Substance: OLMESARTAN MEDOXOMIL
     Dosage: 1/2 (20 MG) TABLET, QD
     Route: 048
     Dates: start: 201403, end: 201410
  4. BENICAR [Suspect]
     Active Substance: OLMESARTAN MEDOXOMIL
     Dosage: 10 MG, QD
     Route: 048
     Dates: start: 201410
  5. BENICAR [Suspect]
     Active Substance: OLMESARTAN MEDOXOMIL
     Dosage: 1/2 (20 MG) TABLET, QOD
     Route: 048
     Dates: end: 201402
  6. BENICAR [Suspect]
     Active Substance: OLMESARTAN MEDOXOMIL
     Dosage: 5 MG, QD
     Route: 048
  7. LOSARTAN [Suspect]
     Active Substance: LOSARTAN
     Indication: HYPERTENSION
     Dosage: HALF TABLET OF 25 MG, QD
     Dates: start: 20141005, end: 201410
  8. BENICAR [Suspect]
     Active Substance: OLMESARTAN MEDOXOMIL
     Indication: HYPERTENSION
     Dosage: 20 MG, QD
     Route: 048
     Dates: end: 2013
  9. FLONASE [Suspect]
     Active Substance: FLUTICASONE PROPIONATE
     Indication: PRODUCT USED FOR UNKNOWN INDICATION
     Dosage: TOOK 3 DOSES
     Route: 045
     Dates: start: 201401, end: 201401

REACTIONS (9)
  - Musculoskeletal stiffness [Not Recovered/Not Resolved]
  - Blood pressure increased [Recovered/Resolved]
  - Sinus disorder [Not Recovered/Not Resolved]
  - Pollakiuria [Unknown]
  - Drug administration error [Recovered/Resolved]
  - Weight decreased [Unknown]
  - Inner ear disorder [Not Recovered/Not Resolved]
  - Back pain [Not Recovered/Not Resolved]
  - Dizziness [Not Recovered/Not Resolved]

NARRATIVE: CASE EVENT DATE: 2012
